FAERS Safety Report 8557506 (Version 4)
Quarter: 2012Q4

REPORT INFORMATION
  Report Type: Spontaneous
  Country: JP (occurrence: None)
  Receive Date: 20120504
  Receipt Date: 20120917
  Transmission Date: 20130627
  Serious: Yes (Death, Hospitalization, Other)
  Sender: FDA-Public Use
  Company Number: JP-2012-15019

PATIENT
  Age: 93 Year
  Sex: Female

DRUGS (6)
  1. PLETAAL [Suspect]
     Indication: BRADYCARDIA
     Dosage: ORAL
     Route: 048
     Dates: start: 20070619
  2. ZYLORIC (ALLOPURINOL) [Concomitant]
  3. LOCHOL (FLUVASTATIN SODIUM) [Concomitant]
  4. BLOPRESS (CANDESARTAN CILEXETIL) TABLET [Concomitant]
  5. ARICEPT D (DONEPEZIL HYDROCHLORIDE) TABLET [Concomitant]
  6. LASIX (FUROSEMIDE) [Concomitant]

REACTIONS (5)
  - Marasmus [None]
  - Femur fracture [None]
  - Interstitial lung disease [None]
  - Fall [None]
  - Multi-organ failure [None]
